FAERS Safety Report 7303523-0 (Version None)
Quarter: 2011Q1

REPORT INFORMATION
  Report Type: 
  Country: None (occurrence: None)
  Receive Date: 20110221
  Receipt Date: 20110216
  Transmission Date: 20110831
  Serious: Yes (Death)
  Sender: FDA-Public Use
  Company Number: PHHY2011US12842

PATIENT
  Sex: Male

DRUGS (9)
  1. TRAZODONE [Concomitant]
     Dosage: 50 MG, UNK
  2. SIMVASTATIN [Concomitant]
     Dosage: 10 MG, UNK
  3. PANTOPRAZOLE [Concomitant]
     Dosage: 20 MG, UNK
  4. SPIRIVA [Concomitant]
     Dosage: UNK
  5. SUTENT [Concomitant]
     Dosage: 12.5 MG, UNK
  6. VESICARE [Concomitant]
     Dosage: 5 MG, UNK
  7. GLEEVEC [Suspect]
     Dosage: 400 MG, BID
     Route: 048
  8. CITALOPRAM [Concomitant]
     Dosage: 10 MG, UNK
  9. LASIX [Concomitant]
     Dosage: 20 MG, UNK

REACTIONS (1)
  - DEATH [None]
